FAERS Safety Report 7476155-1 (Version None)
Quarter: 2011Q2

REPORT INFORMATION
  Report Type: 
  Country: None (occurrence: None)
  Receive Date: 20110512
  Receipt Date: 20110510
  Transmission Date: 20111010
  Serious: Yes (Hospitalization)
  Sender: FDA-Public Use
  Company Number: DE-MERCK-1105DEU00037

PATIENT
  Age: 74 Year
  Sex: Male

DRUGS (8)
  1. SINGULAIR [Suspect]
     Route: 048
     Dates: start: 20110401
  2. PYRIDOSTIGMINE BROMIDE [Concomitant]
     Route: 065
  3. PREDNISONE [Concomitant]
     Route: 065
  4. SIMVASTATIN [Concomitant]
     Route: 048
  5. PHENPROCOUMON [Concomitant]
     Route: 065
  6. PANTOPRAZOLE SODIUM [Concomitant]
     Route: 065
  7. AZATHIOPRINE [Concomitant]
     Route: 065
  8. RAMIPRIL [Concomitant]
     Route: 065

REACTIONS (4)
  - LOGORRHOEA [None]
  - ADVERSE EVENT [None]
  - RESTLESSNESS [None]
  - AGITATION [None]
